FAERS Safety Report 7713720-8 (Version None)
Quarter: 2011Q3

REPORT INFORMATION
  Report Type: 
  Country: None (occurrence: None)
  Receive Date: 20110826
  Receipt Date: 20110819
  Transmission Date: 20111222
  Serious: No
  Sender: FDA-Public Use
  Company Number: US-PFIZER INC-2011106006

PATIENT
  Sex: Female

DRUGS (3)
  1. XALATAN [Suspect]
     Indication: GLAUCOMA
     Dosage: 1 GTT QHS
  2. LATANOPROST [Suspect]
     Indication: GLAUCOMA
     Dosage: UNK
     Dates: start: 20110705
  3. SYSTANE [Concomitant]
     Dosage: UNK

REACTIONS (2)
  - NASAL DISCOMFORT [None]
  - PRURITUS [None]
